FAERS Safety Report 14916596 (Version 2)
Quarter: 2018Q2

REPORT INFORMATION
  Report Type: Spontaneous
  Country: US (occurrence: US)
  Receive Date: 20180519
  Receipt Date: 20180609
  Transmission Date: 20180711
  Serious: No
  Sender: FDA-Public Use
  Company Number: US-JNJFOC-20180500821

PATIENT
  Age: 67 Year
  Sex: Female
  Weight: 62.6 kg

DRUGS (5)
  1. REMICADE [Suspect]
     Active Substance: INFLIXIMAB
     Indication: PSORIATIC ARTHROPATHY
     Route: 042
     Dates: start: 2005, end: 2010
  2. REMICADE [Suspect]
     Active Substance: INFLIXIMAB
     Indication: PSORIATIC ARTHROPATHY
     Route: 042
     Dates: start: 20180412, end: 20180424
  3. XANAX [Concomitant]
     Active Substance: ALPRAZOLAM
     Indication: ANXIETY
     Route: 048
  4. AMBIEN [Concomitant]
     Active Substance: ZOLPIDEM TARTRATE
     Indication: SLEEP DISORDER
     Dosage: AT NIGHT
     Route: 048
  5. IBUPROFEN. [Concomitant]
     Active Substance: IBUPROFEN
     Indication: PAIN
     Route: 065

REACTIONS (9)
  - Musculoskeletal pain [Recovered/Resolved]
  - Infusion related reaction [Recovered/Resolved]
  - Back pain [Unknown]
  - Peripheral swelling [Unknown]
  - Fatigue [Unknown]
  - Nausea [Unknown]
  - Chills [Recovered/Resolved]
  - Vomiting [Recovered/Resolved]
  - Hypersensitivity [Unknown]

NARRATIVE: CASE EVENT DATE: 20180424
